FAERS Safety Report 24910945 (Version 1)
Quarter: 2025Q1

REPORT INFORMATION
  Report Type: Other
  Country: AT (occurrence: AT)
  Receive Date: 20250131
  Receipt Date: 20250131
  Transmission Date: 20250408
  Serious: Yes (Other)
  Sender: Kanchan Healthcare
  Company Number: AT-Kanchan Healthcare INC-2170201

PATIENT
  Age: 46 Year
  Sex: Male

DRUGS (7)
  1. DEXAMETHASONE [Suspect]
     Active Substance: DEXAMETHASONE
     Indication: Mantle cell lymphoma
  2. RITUXIMAB [Suspect]
     Active Substance: RITUXIMAB
  3. MELPHALAN [Suspect]
     Active Substance: MELPHALAN
  4. ETOPOSIDE [Suspect]
     Active Substance: ETOPOSIDE
  5. BENDAMUSTINE HYDROCHLORIDE [Suspect]
     Active Substance: BENDAMUSTINE HYDROCHLORIDE
  6. CISPLATIN [Suspect]
     Active Substance: CISPLATIN
  7. CYTARABINE [Suspect]
     Active Substance: CYTARABINE

REACTIONS (1)
  - Immune-mediated enterocolitis [Recovering/Resolving]
